FAERS Safety Report 4405372-X (Version None)
Quarter: 2004Q3

REPORT INFORMATION
  Report Type: 
  Country: None (occurrence: None)
  Receive Date: 20040716
  Receipt Date: 20040705
  Transmission Date: 20050211
  Serious: Yes (Death, Life-Threatening)
  Sender: FDA-Public Use
  Company Number: GB-JNJFOC-20040701159

PATIENT
  Age: 72 Year
  Sex: Female

DRUGS (8)
  1. REMICADE [Suspect]
     Dosage: 200 MG INTRAVENOUS
     Route: 042
  2. METHOTREXATE [Concomitant]
  3. FOLIC ACID [Concomitant]
  4. CALCICHEW (CALCIUM CARBONATE) [Concomitant]
  5. LOSARTAN           (LOSARTAN) [Concomitant]
  6. CARBIMAZOLE           (CARBIMAZOLE) [Concomitant]
  7. ESTRADERM [Concomitant]
  8. PREDNISOLONE [Concomitant]

REACTIONS (1)
  - CARDIAC FAILURE [None]
